FAERS Safety Report 9696288 (Version 1)
Quarter: 2013Q4

REPORT INFORMATION
  Report Type: Spontaneous
  Country: JP (occurrence: JP)
  Receive Date: 20131119
  Receipt Date: 20131119
  Transmission Date: 20140711
  Serious: Yes (Other)
  Sender: FDA-Public Use
  Company Number: JP-TAKEDA-2013TJP002890

PATIENT
  Age: 40 Year
  Sex: Male

DRUGS (1)
  1. TAKEPRON OD TABLETS 15 [Suspect]
     Dosage: UNK
     Route: 048
     Dates: start: 201205, end: 201209

REACTIONS (1)
  - Drug-induced liver injury [Unknown]
